FAERS Safety Report 24716948 (Version 1)
Quarter: 2024Q4

REPORT INFORMATION
  Report Type: Spontaneous
  Country: US (occurrence: None)
  Receive Date: 20241209
  Receipt Date: 20241209
  Transmission Date: 20250115
  Serious: No
  Sender: Public
  Company Number: None

PATIENT
  Age: 2 Month
  Sex: Male
  Weight: 6.80 kg

DRUGS (1)
  1. BEYFORTUS [Suspect]
     Active Substance: NIRSEVIMAB-ALIP

REACTIONS (2)
  - Product dispensing error [None]
  - Product dispensing error [None]

NARRATIVE: CASE EVENT DATE: 20241114
